FAERS Safety Report 15657310 (Version 2)
Quarter: 2019Q1

REPORT INFORMATION
  Report Type: Report from Study
  Country: RO (occurrence: RO)
  Receive Date: 20181126
  Receipt Date: 20190207
  Transmission Date: 20190417
  Serious: Yes (Other)
  Sender: FDA-Public Use
  Company Number: RO-GILEAD-2018-0375433

PATIENT
  Age: 70 Year
  Sex: Female

DRUGS (12)
  1. FUROSEMID [FUROSEMIDE] [Concomitant]
  2. PROPANOLOL [PROPRANOLOL] [Concomitant]
     Active Substance: PROPRANOLOL HYDROCHLORIDE
  3. BETASERC [BETAHISTINE] [Concomitant]
  4. ASPENTER [Concomitant]
     Active Substance: ASPIRIN
  5. PRESTARIUM [PERINDOPRIL] [Concomitant]
  6. RIVOTRIL [Concomitant]
     Active Substance: CLONAZEPAM
  7. PENTOXIFILIN [Concomitant]
  8. CONTROLOC [Concomitant]
     Active Substance: PANTOPRAZOLE SODIUM
     Dosage: 1 DF, QD
     Route: 048
  9. LEDIPASVIR/SOFOSBUVIR [Suspect]
     Active Substance: LEDIPASVIR\SOFOSBUVIR
     Indication: HEPATITIS C
     Dosage: 1 DF, QD
     Route: 048
     Dates: start: 20181109, end: 20190202
  10. LEDIPASVIR/SOFOSBUVIR [Suspect]
     Active Substance: LEDIPASVIR\SOFOSBUVIR
     Indication: HEPATIC CIRRHOSIS
  11. NITRAZEPAM [Concomitant]
     Active Substance: NITRAZEPAM
  12. BILOBIL [Concomitant]
     Active Substance: GINKGO

REACTIONS (15)
  - Choking sensation [Not Recovered/Not Resolved]
  - Gait disturbance [Not Recovered/Not Resolved]
  - Eye pain [Not Recovered/Not Resolved]
  - Pain [Not Recovered/Not Resolved]
  - Pyrexia [Recovered/Resolved]
  - Vision blurred [Not Recovered/Not Resolved]
  - Hypertensive crisis [Recovered/Resolved]
  - Insomnia [Not Recovered/Not Resolved]
  - Dyspnoea [Not Recovered/Not Resolved]
  - Abdominal pain [Recovered/Resolved]
  - Dizziness [Not Recovered/Not Resolved]
  - Neck pain [Not Recovered/Not Resolved]
  - Hepatic pain [Recovered/Resolved]
  - Headache [Not Recovered/Not Resolved]
  - Asthenia [Not Recovered/Not Resolved]

NARRATIVE: CASE EVENT DATE: 201811
